FAERS Safety Report 8814371 (Version 3)
Quarter: 2012Q4

REPORT INFORMATION
  Report Type: 
  Country: US (occurrence: US)
  Receive Date: 20120928
  Receipt Date: 20121128
  Transmission Date: 20130627
  Serious: Yes (Death)
  Sender: FDA-Public Use
  Company Number: PHEH2012US018908

PATIENT
  Sex: Female

DRUGS (14)
  1. GLEEVEC [Suspect]
     Indication: UTERINE CANCER
     Dosage: 400 mg, daily
     Route: 048
     Dates: start: 20120828
  2. HYDROCODONE W/ACETAMINOPHEN [Concomitant]
  3. ROXANOL [Concomitant]
     Indication: PAIN
     Dosage: 10 mg, QD
     Route: 048
  4. ALENDRONATE SODIUM [Concomitant]
  5. LEVOTHYROXINE SODIUM [Concomitant]
  6. METOPROLOL ER [Concomitant]
  7. ONDANSETRON HYDROCHLORIDE [Concomitant]
  8. FENTANYL [Concomitant]
  9. PRILOSEC [Concomitant]
  10. NEULASTA [Concomitant]
  11. HYDROMORPHONE [Concomitant]
     Indication: PAIN
     Dosage: 0.2 mg/h, UNK
     Route: 042
     Dates: start: 20120922
  12. LORAZEPAM [Concomitant]
     Indication: NAUSEA
     Dosage: 0.5 mg, Q8H
  13. LORAZEPAM [Concomitant]
     Indication: ANXIETY
  14. ZOFRAN [Concomitant]
     Indication: NAUSEA
     Dosage: 8 mg, UNK

REACTIONS (5)
  - Sarcoma uterus [Fatal]
  - Respiratory failure [Fatal]
  - Nausea [Unknown]
  - Vomiting [Unknown]
  - Abdominal pain [Unknown]
